FAERS Safety Report 10584196 (Version 1)
Quarter: 2014Q4

REPORT INFORMATION
  Report Type: Spontaneous
  Country: US (occurrence: None)
  Receive Date: 20141113
  Receipt Date: 20141113
  Transmission Date: 20150529
  Serious: Yes (Other)
  Sender: FDA-Public Use
  Company Number: None

PATIENT
  Age: 47 Year
  Sex: Female
  Weight: 92.99 kg

DRUGS (11)
  1. KATUDA [Concomitant]
  2. DEXILANT [Concomitant]
     Active Substance: DEXLANSOPRAZOLE
  3. OXYGEN. [Concomitant]
     Active Substance: OXYGEN
  4. SOMA [Concomitant]
     Active Substance: CARISOPRODOL
  5. WELLBUTRIN [Concomitant]
     Active Substance: BUPROPION HYDROCHLORIDE
  6. DIAZEPAM. [Concomitant]
     Active Substance: DIAZEPAM
  7. XANAX [Concomitant]
     Active Substance: ALPRAZOLAM
  8. SYMBICORT [Concomitant]
     Active Substance: BUDESONIDE\FORMOTEROL FUMARATE DIHYDRATE
  9. ENBREL [Suspect]
     Active Substance: ETANERCEPT
     Indication: PSORIATIC ARTHROPATHY
     Dosage: 2 MG PER WEEK SURECLICK
  10. PROAIR HFA [Concomitant]
     Active Substance: ALBUTEROL SULFATE
  11. IBUPROFEN. [Concomitant]
     Active Substance: IBUPROFEN

REACTIONS (2)
  - Lymphoma [None]
  - Tuberculosis [None]

NARRATIVE: CASE EVENT DATE: 2011
